FAERS Safety Report 6773500-7 (Version None)
Quarter: 2010Q2

REPORT INFORMATION
  Report Type: 
  Country: None (occurrence: None)
  Receive Date: 20100616
  Receipt Date: 20100608
  Transmission Date: 20101027
  Serious: Yes (Other)
  Sender: FDA-Public Use
  Company Number: US-AMGEN-KDC417114

PATIENT
  Sex: Female
  Weight: 73.5 kg

DRUGS (4)
  1. ENBREL [Suspect]
     Indication: PSORIASIS
     Dates: start: 20091010
  2. INFLUENZA A (H1N1) MONOVALENT VACCINE [Concomitant]
     Dates: start: 20091230, end: 20091230
  3. PRENATAL VITAMINS [Concomitant]
     Route: 048
     Dates: start: 20091210
  4. TYLENOL [Concomitant]
     Route: 048
     Dates: start: 20091010, end: 20100112

REACTIONS (1)
  - PREMATURE LABOUR [None]
